FAERS Safety Report 8889783 (Version 1)
Quarter: 2012Q4

REPORT INFORMATION
  Report Type: Spontaneous
  Country: TR (occurrence: None)
  Receive Date: 20121031
  Receipt Date: 20121031
  Transmission Date: 20130627
  Serious: Yes (Hospitalization)
  Sender: FDA-Public Use
  Company Number: TR 2004 0005

PATIENT
  Sex: Female

DRUGS (1)
  1. LIPIODOL ULTRA FLUIDE (ETHIODIZED OIL), UNKNOWN [Suspect]
     Indication: HYSTEROSALPINGOGRAPHY

REACTIONS (10)
  - Pulmonary embolism [None]
  - Cerebral artery embolism [None]
  - Off label use [None]
  - Speech disorder [None]
  - Coma [None]
  - Respiratory distress [None]
  - Confusional state [None]
  - Tachycardia [None]
  - Cardiomegaly [None]
  - Pulmonary oedema [None]
